FAERS Safety Report 6305879-4 (Version None)
Quarter: 2009Q3

REPORT INFORMATION
  Report Type: 
  Country: None (occurrence: None)
  Receive Date: 20090812
  Receipt Date: 20090806
  Transmission Date: 20100115
  Serious: Yes (Hospitalization, Other)
  Sender: FDA-Public Use
  Company Number: US-MYLANLABS-2009S1014023

PATIENT
  Age: 49 Year
  Sex: Female

DRUGS (3)
  1. CLOZAPINE [Suspect]
     Indication: SCHIZOPHRENIA
     Route: 048
     Dates: start: 20090401, end: 20090401
  2. CLOZAPINE [Suspect]
     Route: 048
     Dates: start: 20090701, end: 20090806
  3. CLOZARIL [Suspect]
     Indication: SCHIZOPHRENIA
     Route: 048
     Dates: start: 20090401, end: 20090601

REACTIONS (3)
  - CARDIAC NEOPLASM UNSPECIFIED [None]
  - PNEUMONIA [None]
  - WHITE BLOOD CELL COUNT INCREASED [None]
